FAERS Safety Report 19153655 (Version 1)
Quarter: 2021Q2

REPORT INFORMATION
  Report Type: Spontaneous
  Country: US (occurrence: US)
  Receive Date: 20210419
  Receipt Date: 20210419
  Transmission Date: 20210717
  Serious: Yes (Other)
  Sender: FDA-Public Use
  Company Number: US-GLAXOSMITHKLINE-US2021082205

PATIENT
  Sex: Female

DRUGS (1)
  1. ZANTAC [Suspect]
     Active Substance: RANITIDINE HYDROCHLORIDE
     Indication: PRODUCT USED FOR UNKNOWN INDICATION
     Dosage: 150 MG, BID
     Dates: start: 19991006

REACTIONS (3)
  - Product dispensing error [Unknown]
  - Malignant neoplasm of eye [Unknown]
  - Recalled product administered [Unknown]

NARRATIVE: CASE EVENT DATE: 2003
